FAERS Safety Report 13433610 (Version 2)
Quarter: 2019Q3

REPORT INFORMATION
  Report Type: Report from Study
  Country: US (occurrence: US)
  Receive Date: 20170412
  Receipt Date: 20190910
  Transmission Date: 20191004
  Serious: Yes (Hospitalization, Congenital Anomaly, Other)
  Sender: FDA-Public Use
  Company Number: US-UCBSA-2017013045

PATIENT
  Age: 3 Year
  Sex: Female
  Weight: 3 kg

DRUGS (23)
  1. PRENATAL VITAMINS [Concomitant]
     Active Substance: VITAMINS
     Indication: PRODUCT USED FOR UNKNOWN INDICATION
     Dosage: 1 DF, ONCE DAILY (QD)
     Route: 064
     Dates: start: 20140412, end: 20140809
  2. BENADRYL [Concomitant]
     Active Substance: DIPHENHYDRAMINE HYDROCHLORIDE
     Indication: PRURITUS
     Dosage: 25 MG
     Route: 064
     Dates: start: 20140303, end: 20140303
  3. BENADRYL [Concomitant]
     Active Substance: DIPHENHYDRAMINE HYDROCHLORIDE
     Indication: RASH
     Dosage: 1 DF, 2X/WEEK
     Route: 064
     Dates: start: 20140715, end: 20140809
  4. PREDNISONE. [Concomitant]
     Active Substance: PREDNISONE
     Indication: CROHN^S DISEASE
     Dosage: 40 MG, ONCE DAILY (QD)
     Route: 064
     Dates: start: 20140422, end: 20140513
  5. PREDNISONE. [Concomitant]
     Active Substance: PREDNISONE
     Dosage: 20 MG, ONCE DAILY (QD)
     Route: 064
     Dates: start: 20140601, end: 20140606
  6. TYLENOL EXTRA STRENGTH [Concomitant]
     Active Substance: ACETAMINOPHEN
     Indication: HEADACHE
     Dosage: 1000 MG
     Route: 064
     Dates: start: 20131211, end: 20140218
  7. TOPAMAX [Concomitant]
     Active Substance: TOPIRAMATE
     Indication: MIGRAINE
     Dosage: 100 MG, ONCE DAILY (QD)
     Route: 064
     Dates: start: 20131211, end: 20131226
  8. TYLENOL EXTRA STRENGTH [Concomitant]
     Active Substance: ACETAMINOPHEN
     Indication: BACK PAIN
     Dosage: 1000 MG, ONCE DAILY (QD)
     Route: 064
     Dates: start: 20140404, end: 20140404
  9. CERTOLIZUMAB PEGOL [Suspect]
     Active Substance: CERTOLIZUMAB PEGOL
     Indication: CROHN^S DISEASE
     Dosage: 400 MG, MONTHLY (QM)
     Route: 064
     Dates: start: 20131211, end: 20140711
  10. FOLIC ACID. [Concomitant]
     Active Substance: FOLIC ACID
     Indication: PRODUCT USED FOR UNKNOWN INDICATION
     Dosage: 4 MG, ONCE DAILY (QD)
     Route: 064
     Dates: start: 20131211, end: 20140601
  11. ZOFRAN [Concomitant]
     Active Substance: ONDANSETRON HYDROCHLORIDE
     Indication: NAUSEA
     Dosage: 6 MG, ONCE DAILY (QD)
     Route: 064
     Dates: start: 20140425, end: 20140615
  12. PREDNISONE. [Concomitant]
     Active Substance: PREDNISONE
     Dosage: 35 MG, ONCE DAILY (QD)
     Route: 064
     Dates: start: 20140514, end: 20140519
  13. PREDNISONE. [Concomitant]
     Active Substance: PREDNISONE
     Dosage: 25 MG, ONCE DAILY (QD)
     Route: 064
     Dates: start: 20140526, end: 20140531
  14. PREDNISONE. [Concomitant]
     Active Substance: PREDNISONE
     Dosage: 15 MG, ONCE DAILY (QD)
     Route: 064
     Dates: start: 20140607, end: 20140612
  15. PREDNISONE. [Concomitant]
     Active Substance: PREDNISONE
     Dosage: 5 MG, ONCE DAILY (QD)
     Route: 064
     Dates: start: 20140619, end: 20140624
  16. MORPHINE [Concomitant]
     Active Substance: MORPHINE
     Indication: PRODUCT USED FOR UNKNOWN INDICATION
  17. CALCIUM [Concomitant]
     Active Substance: CALCIUM
     Indication: PRODUCT USED FOR UNKNOWN INDICATION
     Dosage: 1000 MG, ONCE DAILY (QD)
     Route: 064
     Dates: start: 20131127, end: 20140809
  18. ASACOL [Concomitant]
     Active Substance: MESALAMINE
     Indication: PRODUCT USED FOR UNKNOWN INDICATION
     Dosage: UNK
     Route: 064
     Dates: start: 20140418, end: 20140420
  19. COLACE [Concomitant]
     Active Substance: DOCUSATE SODIUM
     Indication: CONSTIPATION
     Dosage: 1 DF, ONCE DAILY (QD)
     Route: 064
     Dates: start: 20140726, end: 20140809
  20. PREDNISONE. [Concomitant]
     Active Substance: PREDNISONE
     Dosage: 30 MG, ONCE DAILY (QD)
     Route: 064
     Dates: start: 20140520, end: 20140525
  21. PREDNISONE. [Concomitant]
     Active Substance: PREDNISONE
     Dosage: 10 MG, ONCE DAILY (QD)
     Route: 064
     Dates: start: 20140613, end: 20140618
  22. TYLENOL EXTRA STRENGTH [Concomitant]
     Active Substance: ACETAMINOPHEN
     Dosage: 1000 MG
     Route: 064
     Dates: start: 20140715, end: 20140809
  23. HYDROCORTISONE. [Concomitant]
     Active Substance: HYDROCORTISONE
     Indication: RASH
     Dosage: UNK, AS NEEDED (PRN)
     Route: 064
     Dates: start: 20140303, end: 20140418

REACTIONS (5)
  - Premature baby [Unknown]
  - Maternal exposure during pregnancy [Unknown]
  - Tonsillar inflammation [Unknown]
  - Pain [Unknown]
  - Arachnoid cyst [Unknown]

NARRATIVE: CASE EVENT DATE: 20131211
